FAERS Safety Report 4645653-8 (Version None)
Quarter: 2005Q2

REPORT INFORMATION
  Report Type: 
  Country: None (occurrence: None)
  Receive Date: 20050331
  Receipt Date: 20041206
  Transmission Date: 20051028
  Serious: No
  Sender: FDA-Public Use
  Company Number: 04P-163-0282589-00

PATIENT
  Age: 71 Year
  Sex: Female
  Weight: 195.0467 kg

DRUGS (15)
  1. HUMIRA [Suspect]
     Indication: RHEUMATOID ARTHRITIS
     Dosage: 40MG, 1 IN 1 WK, SUBCUTANEOUS
     Route: 058
     Dates: start: 20040301
  2. VITAMINS [Concomitant]
  3. FAMOTIDINE [Concomitant]
  4. GLUCOPHAGE [Concomitant]
  5. NATEGLINIDE [Concomitant]
  6. GLIMEPIRIDE [Concomitant]
  7. METOPROLOL TARTRATE [Concomitant]
  8. LISINOPRIL [Concomitant]
  9. DIAZEPAM [Concomitant]
  10. DILTIAZEM [Concomitant]
  11. HYDROCHLOROTHIAZIDE [Concomitant]
  12. LEVOTHYROXINE SODIUM [Concomitant]
  13. FUROSEMIDE [Concomitant]
  14. POTASSIUM CHLORIDE [Concomitant]
  15. BABY USA [Concomitant]

REACTIONS (1)
  - SINUS DISORDER [None]
